FAERS Safety Report 18169334 (Version 4)
Quarter: 2021Q2

REPORT INFORMATION
  Report Type: Spontaneous
  Country: US (occurrence: US)
  Receive Date: 20200819
  Receipt Date: 20210624
  Transmission Date: 20210717
  Serious: No
  Sender: FDA-Public Use
  Company Number: US-PFIZER INC-2020319369

PATIENT
  Age: 57 Year
  Sex: Female

DRUGS (2)
  1. IBRANCE [Suspect]
     Active Substance: PALBOCICLIB
     Indication: BREAST CANCER METASTATIC
     Dosage: 125 MG, CYCLIC (ONCE A DAY, 21 DAYS ON AND 7 DAYS OFF)
     Dates: start: 20170525
  2. LETROZOLE. [Concomitant]
     Active Substance: LETROZOLE
     Indication: BREAST CANCER METASTATIC
     Dosage: UNK

REACTIONS (6)
  - Platelet count decreased [Unknown]
  - COVID-19 [Recovered/Resolved]
  - Nasopharyngitis [Unknown]
  - Blood count abnormal [Not Recovered/Not Resolved]
  - Platelet dysfunction [Unknown]
  - Candida infection [Recovered/Resolved]

NARRATIVE: CASE EVENT DATE: 20210105
